FAERS Safety Report 5809227-5 (Version None)
Quarter: 2008Q3

REPORT INFORMATION
  Report Type: 
  Country: None (occurrence: None)
  Receive Date: 20080714
  Receipt Date: 20071206
  Transmission Date: 20090109
  Serious: No
  Sender: FDA-Public Use
  Company Number: US-BOEHRINGER INGELHEIM GMBH, GERMANY-2007-BP-04441BP

PATIENT
  Sex: Male
  Weight: 77 kg

DRUGS (3)
  1. MIRAPEX [Suspect]
     Indication: RESTLESS LEGS SYNDROME
     Dosage: BETWEEN 0.125 MG TID TO 2 MG 4 TIMES A DAY
     Dates: start: 20010711, end: 20060501
  2. MIRAPEX [Suspect]
     Indication: PARKINSON'S DISEASE
  3. REQUIP [Suspect]
     Dates: start: 20060508, end: 20060808

REACTIONS (3)
  - LIBIDO INCREASED [None]
  - OBSESSIVE-COMPULSIVE DISORDER [None]
  - PATHOLOGICAL GAMBLING [None]
